FAERS Safety Report 21176074 (Version 1)
Quarter: 2022Q3

REPORT INFORMATION
  Report Type: Spontaneous
  Country: US (occurrence: US)
  Receive Date: 20220805
  Receipt Date: 20220805
  Transmission Date: 20221027
  Serious: No
  Sender: FDA-Public Use
  Company Number: US-CELGENE-USA-20211103492

PATIENT
  Age: 79 Year
  Sex: Male

DRUGS (6)
  1. THALIDOMIDE [Suspect]
     Active Substance: THALIDOMIDE
     Indication: Intestinal vascular disorder
     Dosage: 100 MILLIGRAM
     Route: 048
     Dates: start: 201807
  2. THALIDOMIDE [Suspect]
     Active Substance: THALIDOMIDE
     Indication: Off label use
     Dosage: 100 MILLIGRAM
     Route: 048
     Dates: start: 201902
  3. THALIDOMIDE [Suspect]
     Active Substance: THALIDOMIDE
     Dosage: 50-100 MILLIGRAM
     Route: 048
     Dates: start: 201909
  4. THALIDOMIDE [Suspect]
     Active Substance: THALIDOMIDE
     Dosage: 200 MILLIGRAM
     Route: 048
     Dates: start: 201912
  5. THALIDOMIDE [Suspect]
     Active Substance: THALIDOMIDE
     Dosage: 50-100 MILLIGRAM
     Route: 048
     Dates: start: 202002
  6. THALIDOMIDE [Suspect]
     Active Substance: THALIDOMIDE
     Dosage: 50 MILLIGRAM
     Route: 048
     Dates: start: 202106

REACTIONS (1)
  - Epistaxis [Unknown]
